FAERS Safety Report 25368051 (Version 2)
Quarter: 2025Q2

REPORT INFORMATION
  Report Type: Spontaneous
  Country: HU (occurrence: HU)
  Receive Date: 20250528
  Receipt Date: 20250620
  Transmission Date: 20250716
  Serious: Yes (Other)
  Sender: NOVARTIS
  Company Number: HU-002147023-NVSC2025HU083750

PATIENT
  Age: 41 Year
  Sex: Female

DRUGS (6)
  1. KISQALI [Suspect]
     Active Substance: RIBOCICLIB SUCCINATE
     Indication: Hormone receptor positive HER2 negative breast cancer
     Route: 065
     Dates: start: 20230619, end: 20230719
  2. KISQALI [Suspect]
     Active Substance: RIBOCICLIB SUCCINATE
     Route: 065
     Dates: start: 20230829, end: 20230926
  3. KISQALI [Suspect]
     Active Substance: RIBOCICLIB SUCCINATE
     Route: 065
     Dates: start: 20231026
  4. LETROZOLE [Suspect]
     Active Substance: LETROZOLE
     Indication: Hormone receptor positive breast cancer
     Route: 065
     Dates: start: 20230619, end: 202307
  5. LETROZOLE [Suspect]
     Active Substance: LETROZOLE
     Route: 065
     Dates: start: 20230801
  6. ZOLEDRONIC ACID [Concomitant]
     Active Substance: ZOLEDRONIC ACID
     Indication: Product used for unknown indication
     Route: 065
     Dates: start: 20230926

REACTIONS (11)
  - Neutropenia [Not Recovered/Not Resolved]
  - Breast cancer [Recovered/Resolved]
  - Metastases to bone [Unknown]
  - Metastases to lymph nodes [Recovering/Resolving]
  - Lymphadenopathy [Recovering/Resolving]
  - Malignant neoplasm progression [Recovering/Resolving]
  - Hypermetabolism [Unknown]
  - Pneumonitis [Unknown]
  - Photosensitivity reaction [Recovered/Resolved]
  - Rash pruritic [Recovered/Resolved]
  - Upper respiratory tract infection [Unknown]

NARRATIVE: CASE EVENT DATE: 20230101
